FAERS Safety Report 15474643 (Version 1)
Quarter: 2018Q4

REPORT INFORMATION
  Report Type: Spontaneous
  Country: FR (occurrence: FR)
  Receive Date: 20181008
  Receipt Date: 20181008
  Transmission Date: 20190205
  Serious: Yes (Hospitalization, Other)
  Sender: FDA-Public Use
  Company Number: FR-JNJFOC-20181004654

PATIENT
  Age: 74 Year
  Sex: Female

DRUGS (3)
  1. XARELTO [Suspect]
     Active Substance: RIVAROXABAN
     Indication: ANTICOAGULANT THERAPY
     Route: 048
     Dates: start: 20180831
  2. XARELTO [Suspect]
     Active Substance: RIVAROXABAN
     Indication: ARRHYTHMIA
     Route: 048
     Dates: start: 20180831
  3. INEXIUM [Concomitant]
     Active Substance: ESOMEPRAZOLE
     Route: 065

REACTIONS (12)
  - Sleep apnoea syndrome [Unknown]
  - Malaise [Unknown]
  - Flatulence [Unknown]
  - Haematoma [Unknown]
  - Abdominal distension [Unknown]
  - Product dose omission [Unknown]
  - Feeding disorder [Unknown]
  - Palpitations [Unknown]
  - Respiratory arrest [Unknown]
  - Dyspepsia [Unknown]
  - Epistaxis [Unknown]
  - Abdominal pain [Unknown]

NARRATIVE: CASE EVENT DATE: 20180831
